FAERS Safety Report 7946516-2 (Version None)
Quarter: 2011Q4

REPORT INFORMATION
  Report Type: 
  Country: None (occurrence: None)
  Receive Date: 20111129
  Receipt Date: 20111118
  Transmission Date: 20120403
  Serious: Yes (Hospitalization)
  Sender: FDA-Public Use
  Company Number: JP-NOVOPROD-338588

PATIENT

DRUGS (2)
  1. LEVEMIR [Suspect]
     Indication: DIABETES MELLITUS
     Dosage: 300UT
     Route: 058
  2. NOVORAPID CHU FLEXPEN [Suspect]
     Indication: DIABETES MELLITUS
     Dosage: 1500UT
     Route: 058

REACTIONS (3)
  - SUICIDE ATTEMPT [None]
  - INTENTIONAL OVERDOSE [None]
  - HYPOGLYCAEMIC COMA [None]
